FAERS Safety Report 16525808 (Version 3)
Quarter: 2019Q4

REPORT INFORMATION
  Report Type: Report from Study
  Country: None (occurrence: BR)
  Receive Date: 20190703
  Receipt Date: 20191031
  Transmission Date: 20200122
  Serious: Yes (Hospitalization, Other)
  Sender: FDA-Public Use
  Company Number: BR-ABBVIE-19K-020-2838407-00

PATIENT
  Sex: Female
  Weight: 64 kg

DRUGS (1)
  1. HUMIRA [Suspect]
     Active Substance: ADALIMUMAB
     Indication: RHEUMATOID ARTHRITIS
     Route: 058
     Dates: start: 20181208, end: 20190621

REACTIONS (10)
  - Procedural complication [Unknown]
  - Skin ulcer [Not Recovered/Not Resolved]
  - Foot operation [Unknown]
  - Pain [Unknown]
  - Musculoskeletal disorder [Unknown]
  - Osteonecrosis [Not Recovered/Not Resolved]
  - Surgical failure [Not Recovered/Not Resolved]
  - Discharge [Unknown]
  - Foot operation [Not Recovered/Not Resolved]
  - Pyrexia [Unknown]

NARRATIVE: CASE EVENT DATE: 20190605
